FAERS Safety Report 7335072-8 (Version None)
Quarter: 2011Q1

REPORT INFORMATION
  Report Type: 
  Country: None (occurrence: None)
  Receive Date: 20110307
  Receipt Date: 20110222
  Transmission Date: 20110831
  Serious: Yes (Death, Hospitalization)
  Sender: FDA-Public Use
  Company Number: US-ELI_LILLY_AND_COMPANY-US201102006470

PATIENT
  Age: 46 Year
  Sex: Male

DRUGS (3)
  1. METHADONE [Concomitant]
  2. OLANZAPINE [Suspect]
  3. CITALOPRAM [Concomitant]

REACTIONS (1)
  - DEATH [None]
